FAERS Safety Report 23873607 (Version 1)
Quarter: 2024Q2

REPORT INFORMATION
  Report Type: Spontaneous
  Country: US (occurrence: US)
  Receive Date: 20240520
  Receipt Date: 20240520
  Transmission Date: 20240716
  Serious: No
  Sender: FDA-Public Use
  Company Number: US-Stemline Therapeutics, Inc.-2024ST001428

PATIENT
  Age: 78 Year
  Sex: Female

DRUGS (3)
  1. ORSERDU [Suspect]
     Active Substance: ELACESTRANT
     Indication: Product used for unknown indication
     Route: 048
     Dates: start: 20230811
  2. ORSERDU [Suspect]
     Active Substance: ELACESTRANT
     Indication: Breast cancer metastatic
  3. KISQALI [Concomitant]
     Active Substance: RIBOCICLIB
     Indication: Metastases to breast
     Dosage: 21 DAYS ON AND 7 DAYS OFF
     Dates: start: 20231031

REACTIONS (1)
  - Fatigue [Unknown]
